FAERS Safety Report 6753604-5 (Version None)
Quarter: 2010Q2

REPORT INFORMATION
  Report Type: 
  Country: None (occurrence: None)
  Receive Date: 20100601
  Receipt Date: 20100521
  Transmission Date: 20101027
  Serious: Yes (Other)
  Sender: FDA-Public Use
  Company Number: DSA_43176_2010

PATIENT
  Sex: Female

DRUGS (5)
  1. XENAZINE [Suspect]
     Indication: CHOREOATHETOSIS
     Dosage: (12.5 MG QD ORAL), (1/2 OF 12.5 MG TABLET TWICE DAILY ORAL), (12.5   MG BID ORAL)
     Route: 048
  2. XENAZINE [Suspect]
     Indication: CHOREOATHETOSIS
     Dosage: (12.5 MG QD ORAL), (1/2 OF 12.5 MG TABLET TWICE DAILY ORAL), (12.5   MG BID ORAL)
     Route: 048
     Dates: start: 20100301
  3. XENAZINE [Suspect]
     Indication: CHOREOATHETOSIS
     Dosage: (12.5 MG QD ORAL), (1/2 OF 12.5 MG TABLET TWICE DAILY ORAL), (12.5   MG BID ORAL)
     Route: 048
     Dates: start: 20100501
  4. COUMADIN [Suspect]
     Dosage: ( 3 MG AND  3.5 MG TABLETS ALTERNATING DAYS), (2.5 MG QD)
  5. SULFAMETHOXAZOLE [Concomitant]

REACTIONS (3)
  - BALANCE DISORDER [None]
  - INTERNATIONAL NORMALISED RATIO INCREASED [None]
  - IRRITABILITY [None]
